FAERS Safety Report 5732538-9 (Version None)
Quarter: 2008Q2

REPORT INFORMATION
  Report Type: 
  Country: None (occurrence: None)
  Receive Date: 20080507
  Receipt Date: 20080421
  Transmission Date: 20081010
  Serious: Yes (Hospitalization)
  Sender: FDA-Public Use
  Company Number: S08-FRA-01626-01

PATIENT
  Age: 70 Year
  Sex: Male

DRUGS (8)
  1. CITALOPRAM HYDROBROMIDE [Suspect]
     Dosage: 10 MG QD IV
     Route: 042
     Dates: start: 20080327, end: 20080404
  2. SERTRALINE [Suspect]
     Dosage: 50 MG BID PO
     Route: 048
     Dates: start: 20080405, end: 20080406
  3. MEPRONIZINE [Concomitant]
  4. ZOLPIDEM TARTRATE [Concomitant]
  5. OXAZEPAM [Concomitant]
  6. CEBUTUD (FLURBIPROFEN) [Concomitant]
  7. OLMETEC /GFR/ (OLMESARTAN MEDOXOMIL) [Concomitant]
  8. NICARDIPINE HCL [Concomitant]

REACTIONS (1)
  - CONVULSION [None]
